FAERS Safety Report 9356608 (Version 2)
Quarter: 2013Q2

REPORT INFORMATION
  Report Type: Report from Study
  Country: US (occurrence: US)
  Receive Date: 20130619
  Receipt Date: 20130624
  Transmission Date: 20140414
  Serious: Yes (Hospitalization)
  Sender: FDA-Public Use
  Company Number: US-ACTELION-A-NJ2013-84788

PATIENT
  Age: 73 Year
  Sex: Female

DRUGS (4)
  1. VENTAVIS [Suspect]
     Indication: PULMONARY ARTERIAL HYPERTENSION
     Dosage: 5 MCG, UNK
     Route: 055
  2. SILDENAFIL [Concomitant]
  3. ADCIRCA [Concomitant]
  4. INSULIN [Concomitant]

REACTIONS (3)
  - Blood glucose decreased [Recovered/Resolved]
  - Treatment noncompliance [Recovered/Resolved]
  - Diet noncompliance [Recovered/Resolved]
